FAERS Safety Report 9304974 (Version 1)
Quarter: 2013Q2

REPORT INFORMATION
  Report Type: Spontaneous
  Country: US (occurrence: US)
  Receive Date: 20130523
  Receipt Date: 20130523
  Transmission Date: 20140414
  Serious: Yes (Death)
  Sender: FDA-Public Use
  Company Number: US-GENZYME-CERZ-1002957

PATIENT
  Sex: Female

DRUGS (1)
  1. CEREZYME [Suspect]
     Indication: GAUCHER^S DISEASE
     Dosage: 4000 U, Q4W
     Route: 042
     Dates: start: 200311

REACTIONS (2)
  - Ovarian cancer [Fatal]
  - Inappropriate schedule of drug administration [Unknown]
